FAERS Safety Report 15556977 (Version 2)
Quarter: 2018Q4

REPORT INFORMATION
  Report Type: Spontaneous
  Country: PL (occurrence: PL)
  Receive Date: 20181026
  Receipt Date: 20181102
  Transmission Date: 20190205
  Serious: Yes (Life-Threatening, Hospitalization, Other)
  Sender: FDA-Public Use
  Company Number: PL-PFIZER INC-2018431910

PATIENT
  Sex: Male

DRUGS (3)
  1. POTASSIUM [Concomitant]
     Active Substance: POTASSIUM
  2. MAGNESIUM [Concomitant]
     Active Substance: MAGNESIUM
  3. DOSTINEX [Suspect]
     Active Substance: CABERGOLINE
     Indication: LIBIDO DISORDER
     Dosage: 0.5 MG,
     Dates: start: 20181019

REACTIONS (11)
  - Constipation [Recovered/Resolved]
  - Dyspnoea [Recovered/Resolved]
  - Mood swings [Recovered/Resolved]
  - Apnoea [Recovered/Resolved]
  - Diarrhoea [Recovered/Resolved]
  - Hallucination [Recovered/Resolved]
  - Somnolence [Recovered/Resolved]
  - Decreased appetite [Recovered/Resolved]
  - Nausea [Recovered/Resolved]
  - Hypokalaemia [Recovered/Resolved]
  - Pulmonary function test abnormal [Recovered/Resolved]
